FAERS Safety Report 4688422-5 (Version None)
Quarter: 2005Q2

REPORT INFORMATION
  Report Type: 
  Country: None (occurrence: None)
  Receive Date: 20050609
  Receipt Date: 20050530
  Transmission Date: 20051028
  Serious: Yes (Life-Threatening, Hospitalization)
  Sender: FDA-Public Use
  Company Number: 2005082618

PATIENT
  Age: 51 Year
  Sex: Female

DRUGS (3)
  1. SULFASALAZINE [Suspect]
     Indication: ANKYLOSING SPONDYLITIS
     Dosage: 2000 MG (2 IN 1 D), ORAL
     Route: 048
     Dates: start: 20050214, end: 20050414
  2. ORUDIS [Concomitant]
  3. MESTINON [Concomitant]

REACTIONS (5)
  - ABDOMINAL PAIN [None]
  - FEBRILE NEUTROPENIA [None]
  - LETHARGY [None]
  - NAUSEA [None]
  - RASH [None]
